FAERS Safety Report 6596231-5 (Version None)
Quarter: 2010Q1

REPORT INFORMATION
  Report Type: 
  Country: None (occurrence: None)
  Receive Date: 20100216
  Receipt Date: 20100204
  Transmission Date: 20100710
  Serious: No
  Sender: FDA-Public Use
  Company Number: TPA2010A00566

PATIENT
  Age: 8 Decade
  Sex: Female

DRUGS (2)
  1. KAPIDEX [Suspect]
     Dosage: 60 MG, PER ORAL
     Route: 048
     Dates: start: 20100101
  2. KADIAN [Suspect]
     Dosage: 40 MG, PER ORAL
     Route: 048
     Dates: start: 20100122, end: 20100101

REACTIONS (3)
  - DIZZINESS [None]
  - DRUG DISPENSING ERROR [None]
  - NAUSEA [None]
